FAERS Safety Report 19217339 (Version 1)
Quarter: 2021Q2

REPORT INFORMATION
  Report Type: Spontaneous
  Country: US (occurrence: US)
  Receive Date: 20210505
  Receipt Date: 20210505
  Transmission Date: 20210717
  Serious: No
  Sender: FDA-Public Use
  Company Number: US-BAYER-2021-134406

PATIENT
  Age: 4 Decade
  Sex: Female

DRUGS (2)
  1. CIMZIA [Concomitant]
     Active Substance: CERTOLIZUMAB PEGOL
  2. KYLEENA [Suspect]
     Active Substance: LEVONORGESTREL

REACTIONS (2)
  - Joint swelling [None]
  - Arthralgia [None]
